FAERS Safety Report 5549793-0 (Version None)
Quarter: 2007Q4

REPORT INFORMATION
  Report Type: 
  Country: None (occurrence: None)
  Receive Date: 20071210
  Receipt Date: 20071127
  Transmission Date: 20080405
  Serious: Yes (Hospitalization)
  Sender: FDA-Public Use
  Company Number: 2007-03938

PATIENT
  Age: 76 Year
  Sex: Male

DRUGS (6)
  1. VELCADE [Suspect]
     Indication: MULTIPLE MYELOMA
  2. THALOMID [Suspect]
     Indication: MULTIPLE MYELOMA
     Dosage: 200.00 MG, ORAL
     Route: 048
     Dates: start: 20060113, end: 20060101
  3. DEXAMETHASONE TAB [Suspect]
     Indication: MULTIPLE MYELOMA
  4. LOVENOX [Concomitant]
  5. PROTONIX [Concomitant]
  6. CORTICOSTEROIDS [Concomitant]

REACTIONS (4)
  - ATRIAL FIBRILLATION [None]
  - CORONARY ARTERY DISEASE [None]
  - MITRAL VALVE STENOSIS [None]
  - PNEUMONIA [None]
